FAERS Safety Report 7390646-3 (Version None)
Quarter: 2011Q2

REPORT INFORMATION
  Report Type: 
  Country: None (occurrence: None)
  Receive Date: 20110404
  Receipt Date: 20110325
  Transmission Date: 20111010
  Serious: No
  Sender: FDA-Public Use
  Company Number: US-BIOGENIDEC-2010BI029843

PATIENT
  Age: 34 Year
  Sex: Male

DRUGS (2)
  1. TYSABRI [Suspect]
     Route: 042
     Dates: start: 20100901
  2. TYSABRI [Suspect]
     Indication: MULTIPLE SCLEROSIS
     Route: 042
     Dates: start: 20071011, end: 20081103

REACTIONS (23)
  - PARAESTHESIA [None]
  - DECREASED APPETITE [None]
  - URINARY INCONTINENCE [None]
  - BRAIN OEDEMA [None]
  - TREMOR [None]
  - HYPOAESTHESIA [None]
  - FOOT FRACTURE [None]
  - ALOPECIA [None]
  - MULTIPLE SCLEROSIS RELAPSE [None]
  - WHITE BLOOD CELL COUNT INCREASED [None]
  - BACTERIAL INFECTION [None]
  - ASTHENIA [None]
  - SPINAL CORD OEDEMA [None]
  - OEDEMA PERIPHERAL [None]
  - CYANOSIS [None]
  - SKIN DISCOLOURATION [None]
  - NERVOUS SYSTEM DISORDER [None]
  - WEIGHT DECREASED [None]
  - DECREASED IMMUNE RESPONSIVENESS [None]
  - MUSCLE DISORDER [None]
  - MUSCLE RUPTURE [None]
  - ABASIA [None]
  - POOR PERIPHERAL CIRCULATION [None]
